FAERS Safety Report 25818785 (Version 1)
Quarter: 2025Q3

REPORT INFORMATION
  Report Type: Spontaneous
  Country: US (occurrence: None)
  Receive Date: 20250918
  Receipt Date: 20250918
  Transmission Date: 20251021
  Serious: Yes (Other)
  Sender: FDA-CTU
  Company Number: None

PATIENT
  Age: 63 Year
  Sex: Male

DRUGS (11)
  1. CARVYKTI [Suspect]
     Active Substance: CILTACABTAGENE AUTOLEUCEL
     Indication: Plasma cell myeloma refractory
     Dates: start: 20241209
  2. ACYCLOVIR [Concomitant]
     Active Substance: ACYCLOVIR
  3. CELECOXIB [Concomitant]
     Active Substance: CELECOXIB
  4. APIXABAN [Concomitant]
     Active Substance: APIXABAN
  5. FAMOTIDINE [Concomitant]
     Active Substance: FAMOTIDINE
  6. LOPERAMIDE [Concomitant]
     Active Substance: LOPERAMIDE
  7. PREDNISONE [Concomitant]
     Active Substance: PREDNISONE
  8. SULFAMETHOXAZOLE\TRIMETHOPRIM [Concomitant]
     Active Substance: SULFAMETHOXAZOLE\TRIMETHOPRIM
  9. TRAMADOL [Concomitant]
     Active Substance: TRAMADOL
  10. VITAMIN C [Concomitant]
     Active Substance: ASCORBIC ACID
  11. VITAMIN D3 [Concomitant]
     Active Substance: CHOLECALCIFEROL

REACTIONS (2)
  - Peripheral swelling [None]
  - Peripheral T-cell lymphoma unspecified [None]

NARRATIVE: CASE EVENT DATE: 20250905
